FAERS Safety Report 6395587-6 (Version None)
Quarter: 2009Q4

REPORT INFORMATION
  Report Type: 
  Country: None (occurrence: None)
  Receive Date: 20091009
  Receipt Date: 20091001
  Transmission Date: 20100525
  Serious: Yes (Other)
  Sender: FDA-Public Use
  Company Number: JP-BRISTOL-MYERS SQUIBB COMPANY-14807234

PATIENT
  Age: 64 Year
  Sex: Male
  Weight: 48 kg

DRUGS (6)
  1. ERBITUX [Suspect]
     Indication: COLON CANCER
     Dosage: RECENT INFUSION ON 30-AUG-09
     Route: 042
     Dates: start: 20090317
  2. POLARAMINE [Concomitant]
     Indication: PREMEDICATION
     Route: 042
  3. DECADRON [Concomitant]
     Indication: PREMEDICATION
     Route: 042
  4. IRINOTECAN HCL [Concomitant]
     Indication: COLON CANCER
     Dosage: RECENT INF: 11AUG2009
     Route: 042
     Dates: start: 20090317
  5. SEROTONE [Concomitant]
     Indication: PREMEDICATION
     Dosage: ALSO TAKEN IV
     Route: 048
     Dates: start: 20090414
  6. NAUZELIN [Concomitant]
     Indication: ANTIEMETIC SUPPORTIVE CARE
     Route: 048
     Dates: start: 20090407

REACTIONS (1)
  - HYPOAESTHESIA [None]
